FAERS Safety Report 19955428 (Version 1)
Quarter: 2021Q4

REPORT INFORMATION
  Report Type: Spontaneous
  Country: US (occurrence: US)
  Receive Date: 20211013
  Receipt Date: 20211013
  Transmission Date: 20220303
  Serious: No
  Sender: FDA-Public Use
  Company Number: US-AMGEN-USASP2021157243

PATIENT
  Age: 68 Year
  Sex: Female

DRUGS (11)
  1. OTEZLA [Suspect]
     Active Substance: APREMILAST
     Indication: Psoriasis
     Dosage: 30 MILLIGRAM, BID
     Route: 048
  2. ASPIRIN [Concomitant]
     Active Substance: ASPIRIN
     Indication: Product used for unknown indication
     Dosage: 81 MILLIGRAM
     Route: 065
  3. FEXOFENADINE [Concomitant]
     Active Substance: FEXOFENADINE HYDROCHLORIDE
     Indication: Product used for unknown indication
     Dosage: 180 MILLIGRAM
     Route: 065
  4. FLONASE ALLERGY RELIEF [Concomitant]
     Active Substance: FLUTICASONE PROPIONATE
     Indication: Product used for unknown indication
     Dosage: 50 MICROGRAM (50 MCG/AC)
     Route: 065
  5. IRON [Concomitant]
     Active Substance: IRON
     Indication: Product used for unknown indication
     Dosage: 325 MILLIGRAM
     Route: 065
  6. LEVOTHYROXINE [Concomitant]
     Active Substance: LEVOTHYROXINE
     Indication: Product used for unknown indication
     Dosage: 65 MILLIGRAM
     Route: 065
  7. LEVOTHYROXINE [Concomitant]
     Active Substance: LEVOTHYROXINE
     Dosage: 175 MICROGRAM
     Route: 065
  8. METOPROLOL SUCCINATE [Concomitant]
     Active Substance: METOPROLOL SUCCINATE
     Indication: Product used for unknown indication
     Dosage: 200 MILLIGRAM
     Route: 065
  9. NIFEDIPINE [Concomitant]
     Active Substance: NIFEDIPINE
     Indication: Product used for unknown indication
     Dosage: 20 MILLIGRAM, QMO
     Route: 065
  10. TRIAMTERENE [Concomitant]
     Active Substance: TRIAMTERENE
     Indication: Product used for unknown indication
     Dosage: UNK (5-25 MG)
     Route: 065
  11. VITAMIN D NOS [Concomitant]
     Active Substance: VITAMIN D NOS
     Indication: Product used for unknown indication
     Dosage: 25 MICROGRAM (1000)

REACTIONS (1)
  - Product dose omission issue [Recovered/Resolved]

NARRATIVE: CASE EVENT DATE: 20211001
